FAERS Safety Report 11982323 (Version 3)
Quarter: 2016Q2

REPORT INFORMATION
  Report Type: Spontaneous
  Country: GB (occurrence: GB)
  Receive Date: 20160201
  Receipt Date: 20160513
  Transmission Date: 20160815
  Serious: Yes (Death, Hospitalization, Other)
  Sender: FDA-Public Use
  Company Number: GB-ABBVIE-16K-167-1549667-00

PATIENT
  Age: 66 Year
  Sex: Male
  Weight: 101 kg

DRUGS (2)
  1. HUMIRA [Suspect]
     Active Substance: ADALIMUMAB
     Indication: PSORIATIC ARTHROPATHY
     Route: 058
     Dates: start: 2012
  2. HUMIRA [Suspect]
     Active Substance: ADALIMUMAB
     Indication: PSORIATIC ARTHROPATHY

REACTIONS (15)
  - Renal impairment [Unknown]
  - Lung infiltration [Unknown]
  - Infection [Unknown]
  - Hyperdynamic left ventricle [Unknown]
  - Electrocardiogram Q waves [Unknown]
  - Psoriatic arthropathy [Fatal]
  - Respiratory failure [Unknown]
  - Bronchopulmonary aspergillosis [Fatal]
  - Pneumocystis jirovecii pneumonia [Fatal]
  - Hypertensive heart disease [Fatal]
  - Myocardial infarction [Unknown]
  - Dyspnoea [Unknown]
  - Immunosuppression [Fatal]
  - Malaise [Unknown]
  - Vocal cord paralysis [Unknown]

NARRATIVE: CASE EVENT DATE: 201510
